FAERS Safety Report 8168530-7 (Version None)
Quarter: 2012Q1

REPORT INFORMATION
  Report Type: 
  Country: None (occurrence: None)
  Receive Date: 20120227
  Receipt Date: 20120227
  Transmission Date: 20120608
  Serious: No
  Sender: FDA-Public Use
  Company Number: None

PATIENT
  Age: 61 Year
  Sex: Female
  Weight: 53.977 kg

DRUGS (2)
  1. PAROXETINE HCL [Suspect]
     Indication: PANIC DISORDER
     Dosage: 7.5MG
     Route: 048
     Dates: start: 20010211, end: 20120223
  2. PAROXETINE HCL [Suspect]
     Indication: ANXIETY
     Dosage: 7.5MG
     Route: 048
     Dates: start: 20010211, end: 20120223

REACTIONS (5)
  - IMPAIRED WORK ABILITY [None]
  - SUICIDAL IDEATION [None]
  - DRUG WITHDRAWAL SYNDROME [None]
  - DRUG DEPENDENCE [None]
  - LOSS OF EMPLOYMENT [None]
